FAERS Safety Report 25699491 (Version 1)
Quarter: 2025Q3

REPORT INFORMATION
  Report Type: Spontaneous
  Country: MA (occurrence: MA)
  Receive Date: 20250819
  Receipt Date: 20250819
  Transmission Date: 20251020
  Serious: Yes (Other)
  Sender: MYLAN
  Company Number: MA-MYLANLABS-2025M1069281

PATIENT
  Age: 53 Year
  Sex: Female

DRUGS (2)
  1. LATANOPROST [Suspect]
     Active Substance: LATANOPROST
     Indication: Open angle glaucoma
  2. AMLODIPINE [Concomitant]
     Active Substance: AMLODIPINE BESYLATE
     Indication: Hypertension

REACTIONS (5)
  - Hypotony of eye [Recovered/Resolved]
  - Choroidal detachment [Recovered/Resolved]
  - Hyphaema [Recovered/Resolved]
  - Fibrin abnormal [Recovered/Resolved]
  - Blindness [Unknown]
